FAERS Safety Report 25579493 (Version 2)
Quarter: 2025Q3

REPORT INFORMATION
  Report Type: Spontaneous
  Country: US (occurrence: US)
  Receive Date: 20250718
  Receipt Date: 20250729
  Transmission Date: 20251020
  Serious: No
  Sender: BAUSCH AND LOMB
  Company Number: US-BAUSCH-BH-2025-014669

PATIENT
  Age: 68 Year
  Sex: Female

DRUGS (3)
  1. MYSOLINE [Suspect]
     Active Substance: PRIMIDONE
     Indication: Seizure
     Route: 048
  2. PHENOBARBITAL [Suspect]
     Active Substance: PHENOBARBITAL
     Indication: Product used for unknown indication
     Route: 065
  3. DILANTIN [Suspect]
     Active Substance: PHENYTOIN
     Indication: Product used for unknown indication
     Route: 065

REACTIONS (2)
  - Intentional product misuse [Unknown]
  - No adverse event [Unknown]
